FAERS Safety Report 7447228-4 (Version None)
Quarter: 2011Q2

REPORT INFORMATION
  Report Type: 
  Country: None (occurrence: None)
  Receive Date: 20110429
  Receipt Date: 20101201
  Transmission Date: 20111010
  Serious: No
  Sender: FDA-Public Use
  Company Number: US-ASTRAZENECA-2010SE56996

PATIENT
  Age: 79 Year
  Sex: Female
  Weight: 93.9 kg

DRUGS (4)
  1. WELLBUTRIN [Concomitant]
     Indication: DEPRESSION
  2. FISH OIL [Concomitant]
  3. NEXIUM [Suspect]
     Indication: GASTROOESOPHAGEAL REFLUX DISEASE
     Route: 048
     Dates: start: 20101101
  4. CELEXA [Concomitant]
     Indication: INSOMNIA

REACTIONS (2)
  - ARTHRALGIA [None]
  - PAIN IN EXTREMITY [None]
